FAERS Safety Report 4897285-4 (Version None)
Quarter: 2005Q4

REPORT INFORMATION
  Report Type: 
  Country: None (occurrence: None)
  Receive Date: 20051223
  Receipt Date: 20051010
  Transmission Date: 20060501
  Serious: No
  Sender: FDA-Public Use
  Company Number: 05P-163-0313344-00

PATIENT
  Age: 60 Year
  Sex: Female
  Weight: 132 kg

DRUGS (2)
  1. HUMIRA [Suspect]
     Indication: RHEUMATOID ARTHRITIS
     Dosage: 40 MG, 1IN 2 WK, SUBCUTANEOUS
     Route: 058
     Dates: start: 20050526, end: 20050726
  2. HUMIRA [Suspect]
     Indication: RHEUMATOID ARTHRITIS
     Dosage: 40 MG, 1IN 2 WK, SUBCUTANEOUS
     Route: 058
     Dates: start: 20050829, end: 20050926

REACTIONS (3)
  - OEDEMA PERIPHERAL [None]
  - RASH [None]
  - RHEUMATOID ARTHRITIS [None]
